FAERS Safety Report 5805934-9 (Version None)
Quarter: 2008Q3

REPORT INFORMATION
  Report Type: 
  Country: None (occurrence: None)
  Receive Date: 20080710
  Receipt Date: 20080707
  Transmission Date: 20090109
  Serious: Yes (Other)
  Sender: FDA-Public Use
  Company Number: US-ASTRAZENECA-2008UW13543

PATIENT
  Age: 76 Year
  Sex: Female
  Weight: 52.6 kg

DRUGS (6)
  1. ARIMIDEX [Suspect]
     Indication: BREAST CANCER FEMALE
     Route: 048
     Dates: start: 20080402, end: 20080519
  2. LIPITOR [Concomitant]
     Route: 048
  3. ATENOLOL [Concomitant]
     Route: 048
  4. AMLODIPINE [Concomitant]
     Route: 048
  5. LEVOTHYROXINE SODIUM [Concomitant]
     Route: 048
  6. ASPIRIN [Concomitant]
     Route: 048

REACTIONS (4)
  - ERYTHEMA [None]
  - LUPUS-LIKE SYNDROME [None]
  - PRURITUS [None]
  - RASH [None]
